FAERS Safety Report 22032007 (Version 2)
Quarter: 2023Q1

REPORT INFORMATION
  Report Type: Report from Study
  Country: MY (occurrence: MY)
  Receive Date: 20230224
  Receipt Date: 20230328
  Transmission Date: 20230417
  Serious: Yes (Death, Hospitalization)
  Sender: FDA-Public Use
  Company Number: MY-002147023-NVSC2023MY042245

PATIENT
  Age: 28 Year

DRUGS (2)
  1. GLIVEC [Suspect]
     Active Substance: IMATINIB MESYLATE
     Indication: Hypereosinophilic syndrome
     Dosage: 100 MG, QD
     Route: 065
     Dates: start: 20210305
  2. GLIVEC [Suspect]
     Active Substance: IMATINIB MESYLATE
     Indication: Chronic eosinophilic leukaemia

REACTIONS (2)
  - Chronic eosinophilic leukaemia [Fatal]
  - Malignant neoplasm progression [Fatal]
